FAERS Safety Report 15133630 (Version 1)
Quarter: 2018Q3

REPORT INFORMATION
  Report Type: Spontaneous
  Country: ES (occurrence: ES)
  Receive Date: 20180712
  Receipt Date: 20180712
  Transmission Date: 20181010
  Serious: Yes (Disabling)
  Sender: FDA-Public Use
  Company Number: ES-CIPLA LTD.-2018ES19859

PATIENT

DRUGS (11)
  1. CALCIUM                            /09279801/ [Concomitant]
     Indication: ANTISYNTHETASE SYNDROME
     Dosage: UNK
     Route: 065
  2. IBANDRONATE SODIUM. [Concomitant]
     Active Substance: IBANDRONATE SODIUM
     Indication: ANTISYNTHETASE SYNDROME
     Dosage: UNK
     Route: 065
  3. IBANDRONATE SODIUM. [Concomitant]
     Active Substance: IBANDRONATE SODIUM
     Indication: POLYMYOSITIS
     Dosage: 150 MG, QD
     Route: 065
     Dates: start: 20110701
  4. LEVOFLOXACIN. [Suspect]
     Active Substance: LEVOFLOXACIN
     Indication: UPPER RESPIRATORY TRACT INFECTION
     Dosage: 500 MG, PER DAY
     Route: 065
  5. CICLOSPORIN [Concomitant]
     Active Substance: CYCLOSPORINE
     Indication: ANTISYNTHETASE SYNDROME
     Dosage: UNK
     Route: 065
  6. METHYLPREDNISOLONE. [Interacting]
     Active Substance: METHYLPREDNISOLONE
     Indication: POLYMYOSITIS
     Dosage: 20 MG, PER DAY
     Route: 065
     Dates: start: 20110701
  7. ESCITALOPRAM [Concomitant]
     Active Substance: ESCITALOPRAM OXALATE
     Dosage: 150 MG, QD
     Route: 065
  8. METHYLPREDNISOLONE. [Interacting]
     Active Substance: METHYLPREDNISOLONE
     Indication: ANTISYNTHETASE SYNDROME
     Dosage: UNK
     Route: 065
  9. ESCITALOPRAM [Concomitant]
     Active Substance: ESCITALOPRAM OXALATE
     Indication: DEPRESSION
     Dosage: 10 MG, QD
     Route: 065
     Dates: start: 20110401
  10. CALCIUM                            /09279801/ [Concomitant]
     Indication: POLYMYOSITIS
     Dosage: 2 OT, UNK
     Route: 065
     Dates: start: 20110701
  11. CICLOSPORIN [Concomitant]
     Active Substance: CYCLOSPORINE
     Indication: POLYMYOSITIS
     Dosage: 100 MG, PER DAY
     Route: 065
     Dates: start: 20110701

REACTIONS (6)
  - Gait inability [Recovering/Resolving]
  - Tendon rupture [Recovering/Resolving]
  - Tendon disorder [Recovering/Resolving]
  - Swelling [Recovering/Resolving]
  - Haemarthrosis [Recovering/Resolving]
  - Tendon pain [Recovering/Resolving]
